FAERS Safety Report 9640857 (Version 1)
Quarter: 2013Q4

REPORT INFORMATION
  Report Type: Report from Study
  Country: US (occurrence: US)
  Receive Date: 20131023
  Receipt Date: 20131023
  Transmission Date: 20140711
  Serious: No
  Sender: FDA-Public Use
  Company Number: US-ABBVIE-13P-163-1121515-00

PATIENT
  Sex: Female

DRUGS (1)
  1. LUPRON DEPOT [Suspect]
     Indication: ARTIFICIAL MENOPAUSE
     Route: 050
     Dates: start: 1999

REACTIONS (4)
  - Night sweats [Recovered/Resolved]
  - Injection site pain [Recovered/Resolved]
  - Hot flush [Recovered/Resolved]
  - Off label use [Recovered/Resolved]
